FAERS Safety Report 24695863 (Version 1)
Quarter: 2024Q4

REPORT INFORMATION
  Report Type: Spontaneous
  Country: US (occurrence: US)
  Receive Date: 20241204
  Receipt Date: 20241204
  Transmission Date: 20250115
  Serious: No
  Sender: GLAXOSMITHKLINE
  Company Number: US-GSK-US2024151386

PATIENT
  Age: 59 Year
  Sex: Female

DRUGS (4)
  1. ZEJULA [Suspect]
     Active Substance: NIRAPARIB
     Indication: Ovarian cancer
     Dosage: 200 MG, QD, ONCE OR TWICE DAILY
     Route: 048
     Dates: start: 20240206, end: 20240312
  2. ELIQUIS [Concomitant]
     Active Substance: APIXABAN
     Indication: Deep vein thrombosis
     Dosage: 2.5 MG
     Dates: start: 202402
  3. AMIODARONE [Concomitant]
     Active Substance: AMIODARONE
     Indication: Atrial fibrillation
     Dosage: UNK
  4. ATORVASTATIN [Concomitant]
     Active Substance: ATORVASTATIN
     Indication: Atrial fibrillation
     Dosage: UNK

REACTIONS (4)
  - Blood cholesterol increased [Not Recovered/Not Resolved]
  - Overweight [Not Recovered/Not Resolved]
  - Blood pressure increased [Not Recovered/Not Resolved]
  - Retinal vascular thrombosis [Not Recovered/Not Resolved]

NARRATIVE: CASE EVENT DATE: 20240201
